FAERS Safety Report 4834188-5 (Version None)
Quarter: 2005Q4

REPORT INFORMATION
  Report Type: 
  Country: None (occurrence: None)
  Receive Date: 20051122
  Receipt Date: 20051109
  Transmission Date: 20060501
  Serious: Yes (Hospitalization)
  Sender: FDA-Public Use
  Company Number: 2005CG01849

PATIENT
  Age: 25991 Day
  Sex: Male

DRUGS (17)
  1. NEXIUM [Suspect]
     Route: 048
     Dates: start: 20050620, end: 20050921
  2. ZOCOR [Suspect]
     Route: 048
     Dates: start: 20050901, end: 20050921
  3. ILOMEDINE [Suspect]
     Route: 042
     Dates: start: 20050902, end: 20050921
  4. FOSAMAX [Suspect]
     Route: 048
     Dates: start: 20050620, end: 20050921
  5. ENDOXAN [Concomitant]
     Route: 042
     Dates: start: 20050715, end: 20050715
  6. ENDOXAN [Concomitant]
     Route: 042
     Dates: start: 20050729, end: 20050729
  7. ENDOXAN [Concomitant]
     Route: 042
     Dates: start: 20050813, end: 20050813
  8. ENDOXAN [Concomitant]
     Route: 042
     Dates: start: 20050907, end: 20050907
  9. ENDOXAN [Concomitant]
     Route: 042
     Dates: start: 20050929, end: 20050929
  10. DILTIAZEM HYDROCHLORIDE [Concomitant]
     Indication: HYPERTENSION
     Dates: start: 19900101, end: 20050921
  11. COZAAR [Concomitant]
     Indication: HYPERTENSION
     Dates: start: 19900101
  12. CORTANCYL [Concomitant]
  13. CALCIUM VITAMINE D3 [Concomitant]
  14. BACTRIM [Concomitant]
  15. IXPRIM [Concomitant]
  16. PERMIXON [Concomitant]
  17. FRAXODI [Concomitant]
     Dates: start: 20050911

REACTIONS (5)
  - BLOOD ALKALINE PHOSPHATASE INCREASED [None]
  - GAMMA-GLUTAMYLTRANSFERASE INCREASED [None]
  - GANGRENE [None]
  - THROMBOCYTHAEMIA [None]
  - TRANSAMINASES INCREASED [None]
